FAERS Safety Report 5739280-9 (Version None)
Quarter: 2008Q2

REPORT INFORMATION
  Report Type: 
  Country: None (occurrence: None)
  Receive Date: 20080515
  Receipt Date: 20080509
  Transmission Date: 20081010
  Serious: Yes (Death, Hospitalization)
  Sender: FDA-Public Use
  Company Number: CA-AVENTIS-200814301GDDC

PATIENT

DRUGS (1)
  1. DESMOPRESSIN ACETATE [Suspect]
     Indication: DIABETES INSIPIDUS
     Dosage: DOSE: UNK
     Route: 042

REACTIONS (2)
  - CONVULSION [None]
  - HYPONATRAEMIA [None]
